FAERS Safety Report 16907909 (Version 1)
Quarter: 2019Q4

REPORT INFORMATION
  Report Type: Spontaneous
  Country: US (occurrence: US)
  Receive Date: 20191011
  Receipt Date: 20191011
  Transmission Date: 20200122
  Serious: Yes (Hospitalization)
  Sender: FDA-Public Use
  Company Number: US-BAUSCH-BL-2019-057133

PATIENT
  Age: 19 Year
  Sex: Male

DRUGS (1)
  1. BUPROPION XL [Suspect]
     Active Substance: BUPROPION
     Indication: PRODUCT USED FOR UNKNOWN INDICATION
     Dosage: EXTENDED-RELEASE TABLET
     Route: 048

REACTIONS (5)
  - Respiratory failure [Unknown]
  - Cardiac arrest [Unknown]
  - Product residue present [Unknown]
  - Status epilepticus [Unknown]
  - Intentional overdose [Unknown]
